FAERS Safety Report 17864352 (Version 1)
Quarter: 2020Q2

REPORT INFORMATION
  Report Type: Report from Study
  Country: JP (occurrence: JP)
  Receive Date: 20200605
  Receipt Date: 20200605
  Transmission Date: 20200714
  Serious: Yes (Hospitalization, Other)
  Sender: FDA-Public Use
  Company Number: JP-BIOVERATIV-2018BV000822

PATIENT

DRUGS (9)
  1. EFTRENONACOG ALFA [Suspect]
     Active Substance: EFTRENONACOG ALFA
     Dosage: 500 IU, QW
     Route: 042
     Dates: start: 20160816, end: 20171219
  2. EFTRENONACOG ALFA [Suspect]
     Active Substance: EFTRENONACOG ALFA
     Dosage: 500 IU, QW
     Route: 042
     Dates: start: 20171220, end: 20180501
  3. EFTRENONACOG ALFA [Suspect]
     Active Substance: EFTRENONACOG ALFA
     Indication: FACTOR IX DEFICIENCY
     Dosage: 750 IU, QW
     Route: 042
     Dates: start: 20180508, end: 20180912
  4. TRANEXAMIC ACID. [Concomitant]
     Active Substance: TRANEXAMIC ACID
     Indication: HAEMOSTASIS
     Route: 065
     Dates: start: 20160809, end: 20180825
  5. EFTRENONACOG ALFA [Suspect]
     Active Substance: EFTRENONACOG ALFA
     Indication: FACTOR IX DEFICIENCY
     Dosage: 750 IU, QW
     Route: 042
     Dates: start: 20180508, end: 20180912
  6. EFTRENONACOG ALFA [Suspect]
     Active Substance: EFTRENONACOG ALFA
     Dosage: 500 IU, TWICE
     Route: 042
     Dates: start: 20160808, end: 20160810
  7. EFTRENONACOG ALFA [Suspect]
     Active Substance: EFTRENONACOG ALFA
     Dosage: 500 IU, TWICE
     Route: 042
     Dates: start: 20160808, end: 20160810
  8. EFTRENONACOG ALFA [Suspect]
     Active Substance: EFTRENONACOG ALFA
     Dosage: 500 IU, QW
     Route: 042
     Dates: start: 20160816, end: 20171219
  9. EFTRENONACOG ALFA [Suspect]
     Active Substance: EFTRENONACOG ALFA
     Dosage: 500 IU, QW
     Route: 042
     Dates: start: 20171220, end: 20180501

REACTIONS (3)
  - Arthralgia [Recovered/Resolved]
  - Joint swelling [Recovered/Resolved]
  - Haemarthrosis [Recovered/Resolved]

NARRATIVE: CASE EVENT DATE: 20180615
